FAERS Safety Report 8596445-9 (Version None)
Quarter: 2012Q3

REPORT INFORMATION
  Report Type: 
  Country: None (occurrence: None)
  Receive Date: 20120815
  Receipt Date: 20120813
  Transmission Date: 20120928
  Serious: Yes (Other)
  Sender: FDA-Public Use
  Company Number: US-PFIZER INC-2012162292

PATIENT
  Age: 75 Year
  Sex: Male
  Weight: 70.748 kg

DRUGS (8)
  1. GALANTAMINE [Concomitant]
     Indication: MEMORY IMPAIRMENT
     Dosage: 16 MG, DAILY
  2. COMBIVENT [Concomitant]
     Indication: CHRONIC OBSTRUCTIVE PULMONARY DISEASE
     Dosage: 2 PUFF, 4X/DAY
  3. LISINOPRIL [Concomitant]
     Indication: HYPERTENSION
     Dosage: 20 MG, 1X/DAY
     Route: 048
  4. CHANTIX [Suspect]
     Indication: SMOKING CESSATION THERAPY
     Dosage: 0.5 MG, DAILY
     Route: 048
     Dates: start: 20120626, end: 20120101
  5. OMEPRAZOLE [Concomitant]
     Indication: GASTROOESOPHAGEAL REFLUX DISEASE
  6. CHANTIX [Suspect]
     Indication: TOBACCO USER
     Dosage: 0.5 MG, 1X/DAY
     Route: 048
     Dates: start: 20120702, end: 20120702
  7. OMEPRAZOLE [Concomitant]
     Indication: GASTRIC DISORDER
     Dosage: 20 MG,DAILY
  8. WELLBUTRIN [Concomitant]
     Dosage: UNK

REACTIONS (5)
  - HYPERSENSITIVITY [None]
  - SWOLLEN TONGUE [None]
  - SPEECH DISORDER [None]
  - VISION BLURRED [None]
  - DYSPNOEA [None]
